FAERS Safety Report 23658660 (Version 1)
Quarter: 2024Q1

REPORT INFORMATION
  Report Type: Spontaneous
  Country: BR (occurrence: BR)
  Receive Date: 20240321
  Receipt Date: 20240321
  Transmission Date: 20240410
  Serious: Yes (Other)
  Sender: FDA-Public Use
  Company Number: BR-002147023-PHHY2017BR169019

PATIENT
  Sex: Female
  Weight: 70 kg

DRUGS (1)
  1. BUDESONIDE\FORMOTEROL FUMARATE [Suspect]
     Active Substance: BUDESONIDE\FORMOTEROL FUMARATE
     Indication: Asthma
     Dosage: 1 DF (BUDESONIDE 400UG AND FORMOTEROL FUMARATE 12UG), BID
     Route: 055

REACTIONS (6)
  - Asthmatic crisis [Unknown]
  - Device use issue [Unknown]
  - Influenza [Unknown]
  - Productive cough [Unknown]
  - Panic attack [Unknown]
  - Product availability issue [Unknown]
